FAERS Safety Report 18549248 (Version 1)
Quarter: 2020Q4

REPORT INFORMATION
  Report Type: Spontaneous
  Country: BR (occurrence: BR)
  Receive Date: 20201126
  Receipt Date: 20201126
  Transmission Date: 20210114
  Serious: Yes (Other)
  Sender: FDA-Public Use
  Company Number: BR-SA-2020SA332638

PATIENT

DRUGS (1)
  1. DUPIXENT [Suspect]
     Active Substance: DUPILUMAB
     Dosage: UNK
     Dates: start: 20201109

REACTIONS (3)
  - Condition aggravated [Unknown]
  - Eczema herpeticum [Unknown]
  - Skin injury [Unknown]

NARRATIVE: CASE EVENT DATE: 202011
